FAERS Safety Report 20077388 (Version 1)
Quarter: 2021Q4

REPORT INFORMATION
  Report Type: Spontaneous
  Country: ES (occurrence: ES)
  Receive Date: 20211116
  Receipt Date: 20211116
  Transmission Date: 20220304
  Serious: Yes (Other)
  Sender: FDA-Public Use
  Company Number: None

PATIENT
  Age: 69 Year
  Sex: Male

DRUGS (2)
  1. RIFAXIMIN [Suspect]
     Active Substance: RIFAXIMIN
     Indication: Hepatic cirrhosis
     Dosage: 200 MG EVERY 6 H
     Route: 048
     Dates: start: 20170424, end: 20170816
  2. SORAFENIB [Suspect]
     Active Substance: SORAFENIB
     Indication: Hepatic cancer
     Dosage: 200 MG  EVERY 12 HOURS
     Route: 048
     Dates: start: 20170324, end: 20170816

REACTIONS (1)
  - Dystonia [Recovered/Resolved]

NARRATIVE: CASE EVENT DATE: 20170816
